FAERS Safety Report 22342439 (Version 2)
Quarter: 2023Q2

REPORT INFORMATION
  Report Type: Report from Study
  Country: HU (occurrence: HU)
  Receive Date: 20230519
  Receipt Date: 20230614
  Transmission Date: 20230722
  Serious: Yes (Hospitalization, Other)
  Sender: FDA-Public Use
  Company Number: HU-ABBVIE-4771117

PATIENT
  Sex: Female

DRUGS (7)
  1. CARBIDOPA\LEVODOPA [Suspect]
     Active Substance: CARBIDOPA\LEVODOPA
     Indication: Parkinson^s disease
     Dosage: MORNING DOSE: 6.5 ML; CONTINUOUS DOSE: 1.6 ML/HOUR; EXTRA DOSE: 2.5 ML
     Route: 050
     Dates: start: 20190219
  2. CARBIDOPA\LEVODOPA [Suspect]
     Active Substance: CARBIDOPA\LEVODOPA
  3. SERTADEPI [Concomitant]
     Indication: Affective disorder
     Dosage: 50 MILLIGRAM
     Dates: start: 2018
  4. Noacid [Concomitant]
     Indication: Dyspepsia
     Dosage: 20 MILLIGRAM
  5. AMLODIPINE BESYLATE\INDAPAMIDE\PERINDOPRIL ARGININE [Concomitant]
     Active Substance: AMLODIPINE BESYLATE\INDAPAMIDE\PERINDOPRIL ARGININE
     Indication: Hypertension
     Dosage: 10 MG PERINDOPRIL , 2.5 MG INDAPAMIDE, 5 MG AMLODIPINE / TABLET
     Dates: start: 2019
  6. TRENTAL [Concomitant]
     Active Substance: PENTOXIFYLLINE
     Indication: Product used for unknown indication
     Dosage: 800 MILLIGRAM
     Dates: start: 20220411
  7. ALPRAZOLAM [Concomitant]
     Active Substance: ALPRAZOLAM
     Indication: Anxiolytic therapy
     Dosage: 0.25 MILLIGRAM; 2 TABLETS IN THE EVENING

REACTIONS (6)
  - Dizziness [Recovered/Resolved]
  - Contusion [Recovering/Resolving]
  - Femur fracture [Recovering/Resolving]
  - Fall [Recovered/Resolved]
  - Colitis ischaemic [Unknown]
  - Ankle fracture [Unknown]

NARRATIVE: CASE EVENT DATE: 20220401
